FAERS Safety Report 8890345 (Version 2)
Quarter: 2013Q1

REPORT INFORMATION
  Report Type: Report from Study
  Country: NL (occurrence: NL)
  Receive Date: 20121107
  Receipt Date: 20130118
  Transmission Date: 20140127
  Serious: Yes (Hospitalization)
  Sender: FDA-Public Use
  Company Number: NL-ABBOTT-12P-114-0991380-00

PATIENT
  Age: 0 None
  Sex: Female
  Weight: 6.84 kg

DRUGS (8)
  1. SYNAGIS [Suspect]
     Indication: HEART DISEASE CONGENITAL
     Dosage: 115MG/KG BODY WEIGHT
     Route: 030
     Dates: start: 20120903, end: 20120903
  2. SYNAGIS [Suspect]
     Dates: start: 20121001, end: 20121001
  3. SYNAGIS [Suspect]
     Dates: start: 20121029, end: 20121029
  4. SILDENAFIL [Concomitant]
     Indication: PRODUCT USED FOR UNKNOWN INDICATION
     Dates: start: 2012, end: 20120921
  5. DAVITAMON D [Concomitant]
     Indication: PRODUCT USED FOR UNKNOWN INDICATION
     Dosage: 10 DRIPS
     Dates: start: 2012
  6. ZANTAC [Concomitant]
     Indication: PRODUCT USED FOR UNKNOWN INDICATION
     Dates: start: 2012
  7. FORLAX [Concomitant]
     Indication: PRODUCT USED FOR UNKNOWN INDICATION
     Dates: start: 2012
  8. ASPEGIC [Concomitant]
     Indication: PRODUCT USED FOR UNKNOWN INDICATION
     Dates: start: 2012

REACTIONS (8)
  - Rhinorrhoea [Recovered/Resolved]
  - Blister [Recovered/Resolved]
  - Respiratory tract infection [Recovered/Resolved]
  - Dyspnoea [Recovered/Resolved]
  - Cough [Recovered/Resolved]
  - Rash [Recovered/Resolved]
  - Respiratory tract infection [Recovering/Resolving]
  - Cough [Not Recovered/Not Resolved]
